FAERS Safety Report 4703742-3 (Version None)
Quarter: 2005Q2

REPORT INFORMATION
  Report Type: 
  Country: None (occurrence: None)
  Receive Date: 20050628
  Receipt Date: 20050610
  Transmission Date: 20051028
  Serious: Yes (Hospitalization)
  Sender: FDA-Public Use
  Company Number: USA050598756

PATIENT
  Age: 67 Year
  Sex: Female

DRUGS (1)
  1. EVISTA [Suspect]

REACTIONS (2)
  - BLISTER [None]
  - DIABETIC COMPLICATION [None]
